FAERS Safety Report 6431179-8 (Version None)
Quarter: 2009Q4

REPORT INFORMATION
  Report Type: 
  Country: None (occurrence: None)
  Receive Date: 20091106
  Receipt Date: 20091103
  Transmission Date: 20100525
  Serious: Yes (Life-Threatening, Congenital Anomaly)
  Sender: FDA-Public Use
  Company Number: GB-GILEAD-2009-0025175

PATIENT

DRUGS (6)
  1. TRUVADA [Suspect]
     Indication: HIV INFECTION
     Route: 064
     Dates: end: 20081023
  2. ETRAVIRINE [Suspect]
     Route: 064
  3. PREZISTA [Suspect]
     Route: 064
  4. RALTEGRAVIR [Suspect]
     Route: 064
     Dates: start: 20081023, end: 20090221
  5. RITONAVIR [Suspect]
     Route: 064
  6. TIPRANAVIR [Suspect]
     Route: 064
     Dates: end: 20081023

REACTIONS (4)
  - ANAL ATRESIA [None]
  - BLADDER AGENESIS [None]
  - CONGENITAL GENITAL MALFORMATION [None]
  - EXOMPHALOS [None]
